FAERS Safety Report 20151050 (Version 2)
Quarter: 2025Q3

REPORT INFORMATION
  Report Type: Spontaneous
  Country: EU (occurrence: EU)
  Receive Date: 20211206
  Receipt Date: 20250917
  Transmission Date: 20251021
  Serious: Yes (Other)
  Sender: MYLAN
  Company Number: EU-PFIZER INC-2021344917

PATIENT
  Age: 72 Year

DRUGS (12)
  1. MYCOPHENOLATE MOFETIL [Interacting]
     Active Substance: MYCOPHENOLATE MOFETIL
     Indication: Renal transplant
  2. MYCOPHENOLATE MOFETIL [Interacting]
     Active Substance: MYCOPHENOLATE MOFETIL
     Route: 065
  3. MYCOPHENOLATE MOFETIL [Interacting]
     Active Substance: MYCOPHENOLATE MOFETIL
     Route: 065
  4. MYCOPHENOLATE MOFETIL [Interacting]
     Active Substance: MYCOPHENOLATE MOFETIL
  5. TACROLIMUS [Interacting]
     Active Substance: TACROLIMUS
     Indication: Renal transplant
  6. TACROLIMUS [Interacting]
     Active Substance: TACROLIMUS
     Route: 065
  7. TACROLIMUS [Interacting]
     Active Substance: TACROLIMUS
     Route: 065
  8. TACROLIMUS [Interacting]
     Active Substance: TACROLIMUS
  9. METHYLPREDNISOLONE [Interacting]
     Active Substance: METHYLPREDNISOLONE
     Indication: Renal transplant
  10. METHYLPREDNISOLONE [Interacting]
     Active Substance: METHYLPREDNISOLONE
     Route: 065
  11. METHYLPREDNISOLONE [Interacting]
     Active Substance: METHYLPREDNISOLONE
     Route: 065
  12. METHYLPREDNISOLONE [Interacting]
     Active Substance: METHYLPREDNISOLONE

REACTIONS (3)
  - Cryptococcal cutaneous infection [Unknown]
  - Off label use [Unknown]
  - Labelled drug-drug interaction issue [Unknown]
